FAERS Safety Report 7028847-6 (Version None)
Quarter: 2010Q4

REPORT INFORMATION
  Report Type: 
  Country: None (occurrence: None)
  Receive Date: 20101004
  Receipt Date: 20101004
  Transmission Date: 20110411
  Serious: Yes (Other)
  Sender: FDA-Public Use
  Company Number: None

PATIENT
  Age: 30 Year
  Sex: Female
  Weight: 68.0396 kg

DRUGS (1)
  1. SETRALINE 50 MG ? [Suspect]

REACTIONS (8)
  - ANXIETY [None]
  - CRYING [None]
  - DERMATILLOMANIA [None]
  - DRUG EXPOSURE BEFORE PREGNANCY [None]
  - MANIA [None]
  - PREGNANCY [None]
  - PRODUCT SUBSTITUTION ISSUE [None]
  - SUICIDAL IDEATION [None]
